FAERS Safety Report 10655811 (Version 1)
Quarter: 2014Q4

REPORT INFORMATION
  Report Type: Spontaneous
  Country: US (occurrence: US)
  Receive Date: 20141216
  Receipt Date: 20141216
  Transmission Date: 20150529
  Serious: Yes (Other)
  Sender: FDA-Public Use
  Company Number: US-BAYER-2014-183669

PATIENT
  Age: 45 Year
  Sex: Female
  Weight: 59 kg

DRUGS (2)
  1. RID 1-2-3 SYSTEM [Suspect]
     Active Substance: PIPERONYL BUTOXIDE\PYRETHRUM EXTRACT
     Dosage: UNK
     Route: 061
     Dates: start: 201411, end: 20141128
  2. RID 1-2-3 SYSTEM [Suspect]
     Active Substance: PIPERONYL BUTOXIDE\PYRETHRUM EXTRACT
     Dosage: UNK
     Route: 045
     Dates: start: 20141128, end: 20141128

REACTIONS (5)
  - Dyspnoea [Recovered/Resolved]
  - Burning sensation [Recovered/Resolved]
  - Incorrect drug administration duration [Unknown]
  - Drug administered at inappropriate site [Unknown]
  - Incorrect route of drug administration [Unknown]

NARRATIVE: CASE EVENT DATE: 20141128
